FAERS Safety Report 8484193 (Version 4)
Quarter: 2022Q1

REPORT INFORMATION
  Report Type: Spontaneous
  Country: JP (occurrence: JP)
  Receive Date: 20120330
  Receipt Date: 20220128
  Transmission Date: 20220423
  Serious: Yes (Death, Other)
  Sender: FDA-Public Use
  Company Number: PHHY2012JP026729

PATIENT
  Age: 69 Year
  Sex: Female

DRUGS (5)
  1. GLIVEC [Suspect]
     Active Substance: IMATINIB MESYLATE
     Indication: Hypereosinophilic syndrome
     Dosage: UNK
     Route: 048
  2. HYDROXYUREA [Concomitant]
     Active Substance: HYDROXYUREA
     Indication: Hypereosinophilic syndrome
     Dosage: UNK UNK
     Route: 065
     Dates: start: 201012
  3. MERCAPTOPURINE [Concomitant]
     Active Substance: MERCAPTOPURINE
     Indication: Hypereosinophilic syndrome
     Dosage: UNK UNK
     Route: 065
  4. CYTARABINE [Concomitant]
     Active Substance: CYTARABINE
     Indication: Hypereosinophilic syndrome
     Dosage: UNK UNK
     Route: 065
  5. ETOPOSIDE [Concomitant]
     Active Substance: ETOPOSIDE
     Indication: Hypereosinophilic syndrome
     Dosage: UNK
     Route: 041

REACTIONS (5)
  - Cardio-respiratory arrest [Fatal]
  - Endocardial fibrosis [Fatal]
  - Chronic eosinophilic leukaemia [Unknown]
  - Decreased appetite [Unknown]
  - Drug ineffective [Unknown]
